FAERS Safety Report 4426865-5 (Version None)
Quarter: 2004Q3

REPORT INFORMATION
  Report Type: 
  Country: None (occurrence: None)
  Receive Date: 20040816
  Receipt Date: 20020502
  Transmission Date: 20050211
  Serious: Yes (Hospitalization)
  Sender: FDA-Public Use
  Company Number: PHHO2002HU03486

PATIENT
  Age: 57 Year
  Sex: Female
  Weight: 73 kg

DRUGS (3)
  1. TEGASEROD VS PLACEBO [Suspect]
     Indication: CONSTIPATION
     Dosage: 2 MG, BID
     Route: 048
     Dates: start: 20020328, end: 20020418
  2. MILURIT [Concomitant]
     Route: 048
  3. ROWATINEX [Concomitant]

REACTIONS (5)
  - CONCOMITANT DISEASE PROGRESSION [None]
  - PAIN [None]
  - PYELONEPHRITIS ACUTE [None]
  - PYREXIA [None]
  - STENT PLACEMENT [None]
